FAERS Safety Report 7243416-0 (Version None)
Quarter: 2011Q1

REPORT INFORMATION
  Report Type: 
  Country: None (occurrence: None)
  Receive Date: 20110125
  Receipt Date: 20110112
  Transmission Date: 20110831
  Serious: Yes (Other)
  Sender: FDA-Public Use
  Company Number: US-CELGENEUS-163-20785-08010438

PATIENT
  Sex: Female

DRUGS (4)
  1. THALOMID [Suspect]
     Route: 048
     Dates: start: 20080901
  2. THALOMID [Suspect]
     Dosage: 150-200MG
     Route: 048
     Dates: start: 20070701
  3. THALOMID [Suspect]
     Indication: MULTIPLE MYELOMA
     Route: 048
     Dates: start: 20061001
  4. THALOMID [Suspect]
     Route: 048
     Dates: start: 20061101

REACTIONS (1)
  - BLOOD HUMAN CHORIONIC GONADOTROPIN INCREASED [None]
